FAERS Safety Report 5630991-2 (Version None)
Quarter: 2008Q1

REPORT INFORMATION
  Report Type: 
  Country: None (occurrence: None)
  Receive Date: 20080219
  Receipt Date: 20080211
  Transmission Date: 20080703
  Serious: Yes (Other)
  Sender: FDA-Public Use
  Company Number: CA-SANOFI-SYNTHELABO-F01200600934

PATIENT
  Sex: Male

DRUGS (4)
  1. SYMBICORT [Concomitant]
     Dosage: UNKNOWN
     Route: 065
     Dates: start: 20000615
  2. LEUCOVORIN CALCIUM [Suspect]
     Dosage: 294 MG 1 X PER 2 WEEK
     Route: 042
     Dates: start: 20050705, end: 20050706
  3. FLUOROURACIL [Suspect]
     Dosage: 590 MG 1 X PER 2 WEEK
     Route: 042
     Dates: start: 20050705, end: 20050706
  4. OXALIPLATIN [Suspect]
     Indication: COLON CANCER
     Route: 042
     Dates: start: 20050705, end: 20050705

REACTIONS (1)
  - ANGIOPATHY [None]
